FAERS Safety Report 6517120-8 (Version None)
Quarter: 2009Q4

REPORT INFORMATION
  Report Type: 
  Country: None (occurrence: None)
  Receive Date: 20091223
  Receipt Date: 20091211
  Transmission Date: 20100525
  Serious: Yes (Hospitalization)
  Sender: FDA-Public Use
  Company Number: FR-ELI_LILLY_AND_COMPANY-FR200912002644

PATIENT
  Sex: Female

DRUGS (10)
  1. PROZAC [Suspect]
     Indication: DEPRESSION
     Dosage: 20 MG, DAILY (1/D)
     Route: 048
  2. PREVISCAN [Concomitant]
     Indication: ATRIAL FIBRILLATION
     Dosage: 1 D/F, DAILY (1/D)
     Route: 048
     Dates: end: 20091124
  3. PREVISCAN [Concomitant]
     Dosage: UNK, UNKNOWN
     Route: 065
     Dates: start: 20091127
  4. TRIATEC [Concomitant]
     Dosage: 10 MG, DAILY (1/D)
     Route: 048
  5. LERCANIDIPINE [Concomitant]
     Dosage: 20 MG, DAILY (1/D)
     Route: 048
  6. LEVOTHYROXINE SODIUM [Concomitant]
     Indication: THYROIDECTOMY
     Dosage: 112.5 UG, DAILY (1/D)
     Route: 048
  7. SOTALEX [Concomitant]
     Dosage: 1.5 D/F, 2/D
     Route: 048
  8. TOPALGIC [Concomitant]
     Dosage: 150 MG, DAILY (1/D)
     Route: 048
  9. ATARAX [Concomitant]
     Dosage: 25 MG, 3/D
     Route: 065
  10. MEDIATOR [Concomitant]
     Indication: TYPE 2 DIABETES MELLITUS
     Dosage: 150 MG, 3/D
     Route: 065

REACTIONS (8)
  - ASTHENIA [None]
  - DRUG INTERACTION [None]
  - HAEMOLYSIS [None]
  - HAEMORRHAGIC ANAEMIA [None]
  - INFLAMMATION [None]
  - INTERNATIONAL NORMALISED RATIO INCREASED [None]
  - JAUNDICE [None]
  - PALLOR [None]
